FAERS Safety Report 10356748 (Version 2)
Quarter: 2014Q3

REPORT INFORMATION
  Report Type: Spontaneous
  Country: US (occurrence: US)
  Receive Date: 20140801
  Receipt Date: 20140811
  Transmission Date: 20150326
  Serious: Yes (Death, Other)
  Sender: FDA-Public Use
  Company Number: US-NAPPMUNDI-USA-2014-0116068

PATIENT
  Age: 55 Year
  Sex: Male

DRUGS (2)
  1. MIDAZOLAM [Suspect]
     Active Substance: MIDAZOLAM\MIDAZOLAM HYDROCHLORIDE
     Indication: DEATH
     Dosage: 50MG INCREMENTS, 15 TIMES
     Route: 042
  2. HYDROMORPHONE HCL [Suspect]
     Active Substance: HYDROMORPHONE HYDROCHLORIDE
     Indication: DEATH
     Dosage: 50MG INCREMENTS , 15 TIMES
     Route: 042

REACTIONS (14)
  - Apnoea [Fatal]
  - Pain [Unknown]
  - Euthanasia [Fatal]
  - Somnolence [Unknown]
  - Heart rate decreased [Unknown]
  - Loss of consciousness [Unknown]
  - Dyspnoea [Fatal]
  - Intentional overdose [Fatal]
  - Brain death [Fatal]
  - Sedation [Unknown]
  - Respiratory arrest [Fatal]
  - Snoring [Unknown]
  - Unevaluable event [Unknown]
  - Wheezing [Unknown]

NARRATIVE: CASE EVENT DATE: 20140723
